FAERS Safety Report 18358345 (Version 1)
Quarter: 2020Q4

REPORT INFORMATION
  Report Type: Spontaneous
  Country: US (occurrence: US)
  Receive Date: 20201008
  Receipt Date: 20201008
  Transmission Date: 20210114
  Serious: No
  Sender: FDA-Public Use
  Company Number: US-TERSERA THERAPEUTICS LLC-2020TRS002389

PATIENT

DRUGS (2)
  1. DEXAMETHASONE. [Concomitant]
     Active Substance: DEXAMETHASONE
     Indication: PRODUCT USED FOR UNKNOWN INDICATION
     Dosage: UNK
     Route: 065
  2. VARUBI [Suspect]
     Active Substance: ROLAPITANT
     Indication: MALIGNANT CONNECTIVE TISSUE NEOPLASM
     Dosage: 180 MG (2 TABLETS OF 90 MG, 1-2 HOURS PRIOR TO CHEMO EVERY 3 WEEKS)
     Route: 048
     Dates: start: 20200724

REACTIONS (3)
  - Illness [Unknown]
  - Spinal pain [Unknown]
  - Abdominal discomfort [Unknown]
